FAERS Safety Report 5695288-3 (Version None)
Quarter: 2008Q2

REPORT INFORMATION
  Report Type: 
  Country: None (occurrence: None)
  Receive Date: 20080404
  Receipt Date: 20080325
  Transmission Date: 20081010
  Serious: Yes (Hospitalization, Other)
  Sender: FDA-Public Use
  Company Number: US-PFIZER INC-2008027664

PATIENT
  Sex: Male
  Weight: 79 kg

DRUGS (1)
  1. CHANTIX [Suspect]
     Indication: SMOKING CESSATION THERAPY
     Dates: start: 20080101, end: 20080301

REACTIONS (3)
  - CARDIAC DISORDER [None]
  - ORAL INTAKE REDUCED [None]
  - WEIGHT DECREASED [None]
